FAERS Safety Report 10370853 (Version 1)
Quarter: 2014Q3

REPORT INFORMATION
  Report Type: Spontaneous
  Country: US (occurrence: None)
  Receive Date: 20140807
  Receipt Date: 20140807
  Transmission Date: 20150326
  Serious: Yes (Other)
  Sender: FDA-Public Use
  Company Number: None

PATIENT
  Age: 65 Year
  Sex: Male
  Weight: 134.5 kg

DRUGS (10)
  1. VIAGRA [Concomitant]
     Active Substance: SILDENAFIL CITRATE
  2. LANSOPRAZOLE. [Concomitant]
     Active Substance: LANSOPRAZOLE
  3. ROPINIROLE. [Concomitant]
     Active Substance: ROPINIROLE
  4. LASIX [Concomitant]
     Active Substance: FUROSEMIDE
  5. SOVALDI [Suspect]
     Active Substance: SOFOSBUVIR
     Indication: HEPATITIS C
     Route: 048
     Dates: start: 20140205, end: 20140723
  6. CARBIDOPA. [Concomitant]
     Active Substance: CARBIDOPA
  7. PROVENTIL [Concomitant]
     Active Substance: ALBUTEROL
  8. IRON [Concomitant]
     Active Substance: IRON
  9. SPIRONOLACTONE. [Concomitant]
     Active Substance: SPIRONOLACTONE
  10. FIBERCON [Concomitant]
     Active Substance: CALCIUM POLYCARBOPHIL

REACTIONS (2)
  - Fatigue [None]
  - Parkinson^s disease [None]

NARRATIVE: CASE EVENT DATE: 20140728
